FAERS Safety Report 9995387 (Version 1)
Quarter: 2014Q1

REPORT INFORMATION
  Report Type: Spontaneous
  Country: GB (occurrence: None)
  Receive Date: 20140307
  Receipt Date: 20140307
  Transmission Date: 20141002
  Serious: Yes (Hospitalization, Disabling)
  Sender: FDA-Public Use
  Company Number: AUR-APL-2014-02468

PATIENT
  Age: 71 Year
  Sex: Male

DRUGS (3)
  1. RISPERIDONE (RISPERIDONE) [Suspect]
     Indication: AGGRESSION
     Route: 048
     Dates: start: 20131220, end: 20131228
  2. CITALOPRAM (CITALOPRAM) [Concomitant]
  3. DONEZEPIL (DONEZEPIL) [Concomitant]

REACTIONS (5)
  - Incontinence [None]
  - Neck pain [None]
  - Abasia [None]
  - Movement disorder [None]
  - General physical health deterioration [None]
